FAERS Safety Report 10716159 (Version 1)
Quarter: 2015Q1

REPORT INFORMATION
  Report Type: Spontaneous
  Country: US (occurrence: US)
  Receive Date: 20150116
  Receipt Date: 20150116
  Transmission Date: 20150721
  Serious: Yes (Other)
  Sender: FDA-Public Use
  Company Number: US-UNITED THERAPEUTICS-UNT-2015-000307

PATIENT
  Age: 61 Year
  Sex: Female
  Weight: 99.77 kg

DRUGS (2)
  1. REMODULIN [Suspect]
     Active Substance: TREPROSTINIL
     Indication: PULMONARY HYPERTENSION
     Dosage: 0.797 ?G/KG, CONTINUING
     Route: 058
     Dates: start: 20081006
  2. ADCIRCA [Concomitant]
     Active Substance: TADALAFIL
     Indication: PRODUCT USED FOR UNKNOWN INDICATION

REACTIONS (4)
  - Sinusitis [Unknown]
  - Bronchitis [Unknown]
  - Fatigue [Unknown]
  - Pneumonia [Unknown]

NARRATIVE: CASE EVENT DATE: 201412
